FAERS Safety Report 14963152 (Version 2)
Quarter: 2019Q3

REPORT INFORMATION
  Report Type: Report from Study
  Country: DE (occurrence: DE)
  Receive Date: 20180601
  Receipt Date: 20190702
  Transmission Date: 20191004
  Serious: Yes (Death, Hospitalization)
  Sender: FDA-Public Use
  Company Number: DE-MYLANLABS-2018M1035052

PATIENT
  Age: 65 Year
  Sex: Male
  Weight: 60 kg

DRUGS (15)
  1. RAMIPRIL. [Concomitant]
     Active Substance: RAMIPRIL
     Indication: HYPERTENSION
     Dosage: UNK
  2. ASPIRIN. [Concomitant]
     Active Substance: ASPIRIN
     Indication: HYPERTENSION
     Dosage: UNK
  3. CAPECITABINE. [Suspect]
     Active Substance: CAPECITABINE
     Dosage: 2000 MILLIGRAM (FOR 14 DAYS OF A 3 WEEK
     Route: 048
     Dates: start: 20130725, end: 20131219
  4. KALIUMIODID BC [Concomitant]
     Indication: PRODUCT USED FOR UNKNOWN INDICATION
     Dosage: UNK
  5. ZOLEDRONIC ACID [Concomitant]
     Active Substance: ZOLEDRONIC ACID
     Indication: METASTASES TO BONE
     Dosage: 1 DOSAGE FORM, MONTHLY
     Route: 065
     Dates: start: 20130628, end: 20131219
  6. CAPECITABINE. [Suspect]
     Active Substance: CAPECITABINE
     Indication: COLORECTAL CANCER
     Dosage: 2500 MILLIGRAM (FOR 14 DAYS OF A 3 WEEK
     Route: 048
     Dates: start: 20130314, end: 20130704
  7. BEVACIZUMAB. [Suspect]
     Active Substance: BEVACIZUMAB
     Indication: COLORECTAL CANCER METASTATIC
     Dosage: 450 MILLIGRAM
     Route: 042
     Dates: start: 20130314
  8. ALLOPURINOL. [Concomitant]
     Active Substance: ALLOPURINOL
     Indication: HYPERURICAEMIA
     Dosage: UNK
  9. FILGRASTIM [Suspect]
     Active Substance: FILGRASTIM
     Indication: LEUKOPENIA
     Dosage: UNK
     Route: 065
     Dates: start: 20130912, end: 20130912
  10. BUDESONID [Concomitant]
     Active Substance: BUDESONIDE
     Indication: CHRONIC OBSTRUCTIVE PULMONARY DISEASE
     Dosage: UNK
  11. IRINOTECAN [Concomitant]
     Active Substance: IRINOTECAN
     Dosage: 130 MG, (SUBSEQUENT DOSES ON 11/JUL/
     Route: 042
     Dates: start: 20130704
  12. BEVACIZUMAB. [Suspect]
     Active Substance: BEVACIZUMAB
     Dosage: 437.5 MILLIGRAM
     Route: 042
     Dates: start: 20131219
  13. FORMOTEROL [Concomitant]
     Active Substance: FORMOTEROL
     Indication: BRONCHOSPASM
     Dosage: UNK
  14. IRINOTECAN [Concomitant]
     Active Substance: IRINOTECAN
     Indication: COLORECTAL CANCER
     Dosage: 100 MILLIGRAM (SUBSEQUENT DOSES ON 15/AUG/2013
     Route: 042
     Dates: start: 20130725
  15. NOVAMINSULFON [Concomitant]
     Active Substance: METAMIZOLE
     Indication: MUSCULOSKELETAL PAIN
     Dosage: UNK
     Route: 065
     Dates: start: 20130926

REACTIONS (4)
  - Oesophageal haemorrhage [Fatal]
  - Malignant neoplasm progression [Fatal]
  - Erosive oesophagitis [Fatal]
  - Tracheal haemorrhage [Fatal]

NARRATIVE: CASE EVENT DATE: 20140101
